FAERS Safety Report 4700547-4 (Version None)
Quarter: 2005Q2

REPORT INFORMATION
  Report Type: 
  Country: None (occurrence: None)
  Receive Date: 20050627
  Receipt Date: 20050627
  Transmission Date: 20051028
  Serious: Yes (Other)
  Sender: FDA-Public Use
  Company Number: None

PATIENT
  Age: 40 Year
  Sex: Male
  Weight: 72.5755 kg

DRUGS (1)
  1. PAXIL [Suspect]
     Indication: PREMATURE EJACULATION
     Dosage: 10MG   DAY   ORAL
     Route: 048
     Dates: start: 20040901, end: 20041101

REACTIONS (3)
  - FATIGUE [None]
  - HANGOVER [None]
  - LOSS OF LIBIDO [None]
